FAERS Safety Report 12334850 (Version 1)
Quarter: 2016Q2

REPORT INFORMATION
  Report Type: Report from Study
  Country: ES (occurrence: ES)
  Receive Date: 20160504
  Receipt Date: 20160504
  Transmission Date: 20160815
  Serious: Yes (Hospitalization, Other)
  Sender: FDA-Public Use
  Company Number: ES-BRISTOL-MYERS SQUIBB COMPANY-BMS-2016-022670

PATIENT
  Age: 39 Year
  Sex: Male
  Weight: 84 kg

DRUGS (6)
  1. BIMATOPROST. [Concomitant]
     Active Substance: BIMATOPROST
     Indication: PRODUCT USED FOR UNKNOWN INDICATION
     Dosage: UNK
     Route: 065
     Dates: start: 20150615
  2. RAMIPRIL. [Concomitant]
     Active Substance: RAMIPRIL
     Indication: HYPERTENSION
     Dosage: UNK
     Route: 065
     Dates: start: 20160121
  3. NIVOLUMAB [Suspect]
     Active Substance: NIVOLUMAB
     Indication: CHRONIC MYELOID LEUKAEMIA
     Dosage: 3 MG/KG, Q2WK
     Route: 042
     Dates: start: 20150325, end: 20160309
  4. DASATINIB [Suspect]
     Active Substance: DASATINIB
     Indication: CHRONIC MYELOID LEUKAEMIA
     Dosage: 100 MG, UNK
     Route: 048
     Dates: start: 201410, end: 20160309
  5. HIDROXICINA [Concomitant]
     Indication: PRODUCT USED FOR UNKNOWN INDICATION
     Dosage: UNK
     Route: 065
     Dates: start: 201306
  6. CILOSTAZOL. [Concomitant]
     Active Substance: CILOSTAZOL
     Indication: PRODUCT USED FOR UNKNOWN INDICATION
     Dosage: UNK
     Route: 065
     Dates: start: 20151019

REACTIONS (1)
  - Cerebral ischaemia [Recovered/Resolved]

NARRATIVE: CASE EVENT DATE: 20160316
